FAERS Safety Report 4805787-1 (Version None)
Quarter: 2005Q4

REPORT INFORMATION
  Report Type: 
  Country: None (occurrence: None)
  Receive Date: 20051018
  Receipt Date: 20051018
  Transmission Date: 20060501
  Serious: Yes (Hospitalization)
  Sender: FDA-Public Use
  Company Number: None

PATIENT
  Age: 75 Year
  Sex: Female
  Weight: 75 kg

DRUGS (17)
  1. VELCADE [Suspect]
     Indication: METASTATIC MALIGNANT MELANOMA
     Dosage: 2.3 MG  2XWEEKLY -2/3 WKS-  IV
     Route: 042
     Dates: start: 20051004, end: 20051014
  2. TEMOZOLOMIDE [Suspect]
     Indication: METASTATIC MALIGNANT MELANOMA
     Dosage: 135 MG DAILY X6 WEEKS PO
     Route: 048
     Dates: start: 20051011, end: 20051014
  3. OXYCONTIN [Concomitant]
  4. HYDROXINE [Concomitant]
  5. OXYCODONE [Concomitant]
  6. PHENERGAN [Concomitant]
  7. XANAX [Concomitant]
  8. PRILOSEC [Concomitant]
  9. COREG [Concomitant]
  10. ALDOMET [Concomitant]
  11. MICARDIS [Concomitant]
  12. FOSAMAX [Concomitant]
  13. BUMEX [Concomitant]
  14. TYLENOL ARTHRITIS [Concomitant]
  15. FOLIC ACID [Concomitant]
  16. TOMOPTIC [Concomitant]
  17. CENTRUM SILVER [Concomitant]

REACTIONS (5)
  - ARTHRALGIA [None]
  - BACK PAIN [None]
  - GROIN PAIN [None]
  - NAUSEA [None]
  - VOMITING [None]
